FAERS Safety Report 8469669-9 (Version None)
Quarter: 2012Q2

REPORT INFORMATION
  Report Type: 
  Country: None (occurrence: None)
  Receive Date: 20120626
  Receipt Date: 20120622
  Transmission Date: 20120825
  Serious: Yes (Hospitalization)
  Sender: FDA-Public Use
  Company Number: US-GILEAD-2012-0056010

PATIENT
  Sex: Female

DRUGS (1)
  1. LETAIRIS [Suspect]
     Indication: PRODUCT USED FOR UNKNOWN INDICATION
     Dosage: 10 MG, UNK
     Route: 048
     Dates: start: 20080211, end: 20120602

REACTIONS (6)
  - CARDIAC DISORDER [None]
  - FLUID RETENTION [None]
  - LUNG DISORDER [None]
  - CARDIAC FAILURE CONGESTIVE [None]
  - RENAL DISORDER [None]
  - DYSPNOEA [None]
